FAERS Safety Report 4528765-9 (Version None)
Quarter: 2004Q4

REPORT INFORMATION
  Report Type: 
  Country: None (occurrence: None)
  Receive Date: 20041216
  Receipt Date: 20041206
  Transmission Date: 20050328
  Serious: Yes (Hospitalization)
  Sender: FDA-Public Use
  Company Number: FR-ROCHE-388399

PATIENT
  Age: 36 Year
  Sex: Female

DRUGS (8)
  1. ROCEPHIN [Suspect]
     Indication: DRUG USE FOR UNKNOWN INDICATION
     Route: 042
     Dates: start: 20040730, end: 20040812
  2. TETRABENAZINE [Suspect]
     Indication: DRUG USE FOR UNKNOWN INDICATION
     Dosage: DRUG NAME: XENAZINE.
     Route: 048
     Dates: start: 20020220, end: 20040803
  3. TETRABENAZINE [Suspect]
     Route: 048
     Dates: start: 20040819
  4. OFLOCET [Suspect]
     Indication: DRUG USE FOR UNKNOWN INDICATION
     Route: 042
     Dates: start: 20040730, end: 20040812
  5. DAFALGAN [Concomitant]
  6. MILLIGYNON [Concomitant]
  7. SERESTA [Concomitant]
     Route: 048
  8. MOPRAL [Concomitant]
     Route: 048

REACTIONS (6)
  - BLOOD CREATINE PHOSPHOKINASE INCREASED [None]
  - HYPERTHERMIA [None]
  - LEUKOCYTOSIS [None]
  - PILONIDAL CYST [None]
  - RALES [None]
  - URETHRAL DISORDER [None]
